FAERS Safety Report 16721851 (Version 1)
Quarter: 2019Q3

REPORT INFORMATION
  Report Type: Spontaneous
  Country: US (occurrence: US)
  Receive Date: 20190813
  Receipt Date: 20190813
  Transmission Date: 20191005
  Serious: No
  Sender: FDA-Public Use
  Company Number: US-AMGEN-USASP2019126833

PATIENT
  Sex: Female

DRUGS (2)
  1. XGEVA [Suspect]
     Active Substance: DENOSUMAB
     Indication: PRODUCT USED FOR UNKNOWN INDICATION
     Dosage: UNK
     Route: 065
  2. IBRANCE [Suspect]
     Active Substance: PALBOCICLIB
     Indication: BREAST CANCER METASTATIC
     Dosage: 75 MILLIGRAM, Q4WK
     Route: 048
     Dates: start: 201808

REACTIONS (3)
  - Nausea [Unknown]
  - Vomiting [Unknown]
  - Pain in extremity [Unknown]
